FAERS Safety Report 5407076-3 (Version None)
Quarter: 2007Q3

REPORT INFORMATION
  Report Type: 
  Country: None (occurrence: None)
  Receive Date: 20070807
  Receipt Date: 20070727
  Transmission Date: 20080115
  Serious: Yes (Hospitalization)
  Sender: FDA-Public Use
  Company Number: AU-JNJFOC-20070706263

PATIENT
  Sex: Male
  Weight: 84 kg

DRUGS (3)
  1. PALIPERIDONE ER [Suspect]
     Route: 048
  2. PALIPERIDONE ER [Suspect]
     Indication: SCHIZOPHRENIA
     Route: 048
  3. DIAZEPAM [Suspect]
     Indication: DRUG USE FOR UNKNOWN INDICATION

REACTIONS (2)
  - OVERDOSE [None]
  - SCHIZOPHRENIA [None]
